FAERS Safety Report 22130485 (Version 13)
Quarter: 2025Q1

REPORT INFORMATION
  Report Type: Spontaneous
  Country: US (occurrence: US)
  Receive Date: 20230323
  Receipt Date: 20250225
  Transmission Date: 20250408
  Serious: Yes (Other)
  Sender: PFIZER
  Company Number: US-PFIZER INC-PV202300054165

PATIENT
  Age: 52 Year
  Sex: Female

DRUGS (26)
  1. IBRANCE [Suspect]
     Active Substance: PALBOCICLIB
     Indication: Breast cancer female
     Route: 048
     Dates: start: 20230328
  2. IBRANCE [Suspect]
     Active Substance: PALBOCICLIB
     Route: 048
     Dates: start: 20230328
  3. IBRANCE [Suspect]
     Active Substance: PALBOCICLIB
     Route: 048
     Dates: start: 20230602
  4. ALBUTEROL SULFATE [Concomitant]
     Active Substance: ALBUTEROL SULFATE
  5. AMOXICILLIN\CLAVULANATE POTASSIUM [Concomitant]
     Active Substance: AMOXICILLIN\CLAVULANATE POTASSIUM
  6. ANASTROZOLE [Concomitant]
     Active Substance: ANASTROZOLE
  7. BENZONATATE [Concomitant]
     Active Substance: BENZONATATE
  8. CITALOPRAM [Concomitant]
     Active Substance: CITALOPRAM
  9. CYCLOBENZAPRINE [Concomitant]
     Active Substance: CYCLOBENZAPRINE
  10. FENOFIBRATE [Concomitant]
     Active Substance: FENOFIBRATE
  11. IRBESARTAN [Concomitant]
     Active Substance: IRBESARTAN
  12. LETROZOLE [Concomitant]
     Active Substance: LETROZOLE
  13. PREDNISONE [Concomitant]
     Active Substance: PREDNISONE
  14. VERZENIO [Concomitant]
     Active Substance: ABEMACICLIB
  15. VERZENIO [Concomitant]
     Active Substance: ABEMACICLIB
  16. ZOLPIDEM TARTRATE [Concomitant]
     Active Substance: ZOLPIDEM TARTRATE
  17. ZOLPIDEM TARTRATE [Concomitant]
     Active Substance: ZOLPIDEM TARTRATE
  18. CETIRIZINE [Concomitant]
     Active Substance: CETIRIZINE HYDROCHLORIDE
  19. LORATADINE [Concomitant]
     Active Substance: LORATADINE
  20. ONDANSETRON [Concomitant]
     Active Substance: ONDANSETRON
  21. ZOLEDRONIC [Concomitant]
     Active Substance: ZOLEDRONIC ACID
  22. PILOCARPINE [Concomitant]
     Active Substance: PILOCARPINE
  23. CELECOXIB [Concomitant]
     Active Substance: CELECOXIB
  24. ELIQUIS [Concomitant]
     Active Substance: APIXABAN
  25. VITAMIN D3 [Concomitant]
     Active Substance: CHOLECALCIFEROL
  26. ZOLPIDEM [Concomitant]
     Active Substance: ZOLPIDEM TARTRATE

REACTIONS (6)
  - Lower respiratory tract infection [Unknown]
  - Pancytopenia [Unknown]
  - Pyrexia [Not Recovered/Not Resolved]
  - White blood cell count decreased [Recovering/Resolving]
  - Illness [Unknown]
  - Fatigue [Unknown]
